FAERS Safety Report 11887489 (Version 2)
Quarter: 2018Q4

REPORT INFORMATION
  Report Type: Spontaneous
  Country: GB (occurrence: GB)
  Receive Date: 20160105
  Receipt Date: 20181002
  Transmission Date: 20190204
  Serious: Yes (Death, Other)
  Sender: FDA-Public Use
  Company Number: PHHY2015GB167916

PATIENT

DRUGS (6)
  1. TRUVADA [Suspect]
     Active Substance: EMTRICITABINE\TENOFOVIR DISOPROXIL FUMARATE
     Indication: MATERNAL EXPOSURE TIMING UNSPECIFIED
     Dosage: UNK
     Route: 064
     Dates: start: 201407
  2. MIRTAZAPINE. [Suspect]
     Active Substance: MIRTAZAPINE
     Indication: FOETAL EXPOSURE DURING PREGNANCY
     Dosage: MATERNAL DOSE:1 DF, QD
     Route: 064
     Dates: start: 201407
  3. VALACICLOVIR [Suspect]
     Active Substance: VALACYCLOVIR HYDROCHLORIDE
     Indication: FOETAL EXPOSURE DURING PREGNANCY
     Dosage: MATERNAL DOSE: 500 MG, BID
     Route: 064
     Dates: start: 20140918, end: 20140922
  4. CYCLIZINE [Suspect]
     Active Substance: CYCLIZINE
     Indication: FOETAL EXPOSURE DURING PREGNANCY
     Dosage: 50 MG, TID
     Route: 064
     Dates: start: 201409, end: 20141030
  5. DARUNAVIR [Suspect]
     Active Substance: DARUNAVIR
     Indication: FOETAL EXPOSURE DURING PREGNANCY
     Dosage: MATERNAL DOSE:800 MG, QD
     Route: 064
     Dates: start: 201407
  6. NORVIR [Suspect]
     Active Substance: RITONAVIR
     Indication: FOETAL EXPOSURE DURING PREGNANCY
     Dosage: UNK UNK, QD
     Route: 064
     Dates: start: 201407

REACTIONS (4)
  - Spina bifida [Fatal]
  - Foetal exposure during pregnancy [Unknown]
  - Skull malformation [Fatal]
  - Cerebral ventricle dilatation [Fatal]
